FAERS Safety Report 5128333-4 (Version None)
Quarter: 2006Q4

REPORT INFORMATION
  Report Type: 
  Country: None (occurrence: None)
  Receive Date: 20061011
  Receipt Date: 20061010
  Transmission Date: 20070319
  Serious: Yes (Other)
  Sender: FDA-Public Use
  Company Number: URSO-2006-032

PATIENT
  Age: 14 Year
  Sex: Male

DRUGS (3)
  1. DELURSAN (URSODESOXYCHOLIC ACID) [Suspect]
     Indication: HEPATIC PAIN
     Dosage: 500 MG TABLETS PO
     Route: 048
  2. DELURSAN (URSODESOXYCHOLIC ACID) [Suspect]
     Indication: TRANSAMINASES INCREASED
     Dosage: 500 MG TABLETS PO
     Route: 048
  3. METHOTREXATE SODIUM [Suspect]
     Indication: LEUKAEMIA
     Dosage: 15 MG IM
     Route: 030

REACTIONS (2)
  - DRUG INTERACTION [None]
  - DRUG LEVEL DECREASED [None]
